FAERS Safety Report 5489949-9 (Version None)
Quarter: 2007Q4

REPORT INFORMATION
  Report Type: 
  Country: None (occurrence: None)
  Receive Date: 20071015
  Receipt Date: 20070621
  Transmission Date: 20080405
  Serious: No
  Sender: FDA-Public Use
  Company Number: 2007SP002315

PATIENT
  Age: 28 Year
  Sex: Female
  Weight: 99.7913 kg

DRUGS (3)
  1. LUNESTA [Suspect]
     Indication: INSOMNIA
     Dosage: 2 MG;1X;ORAL
     Route: 048
     Dates: start: 20070620, end: 20070620
  2. ZESTRIL [Concomitant]
  3. LEXAPRO [Concomitant]

REACTIONS (3)
  - DYSGEUSIA [None]
  - MIDDLE INSOMNIA [None]
  - NERVOUSNESS [None]
